FAERS Safety Report 22354049 (Version 16)
Quarter: 2025Q1

REPORT INFORMATION
  Report Type: Report from Study
  Country: CA (occurrence: CA)
  Receive Date: 20230523
  Receipt Date: 20250221
  Transmission Date: 20250408
  Serious: Yes (Hospitalization, Other)
  Sender: GLAXOSMITHKLINE
  Company Number: CA-GLAXOSMITHKLINE-CA2022AMR195990

PATIENT

DRUGS (16)
  1. MEPOLIZUMAB [Suspect]
     Active Substance: MEPOLIZUMAB
     Indication: Asthma
     Dosage: 100 MG, Q4W
     Route: 058
     Dates: start: 20201119
  2. MEPOLIZUMAB [Suspect]
     Active Substance: MEPOLIZUMAB
     Indication: Asthma
     Dosage: 100 MG, Q4W
     Route: 058
  3. MEPOLIZUMAB [Suspect]
     Active Substance: MEPOLIZUMAB
     Indication: Asthma
     Dosage: 100 MG, Q4W
     Route: 058
  4. MEPOLIZUMAB [Suspect]
     Active Substance: MEPOLIZUMAB
     Indication: Asthma
     Dosage: 100 MG, Q4W
     Route: 058
  5. MEPOLIZUMAB [Suspect]
     Active Substance: MEPOLIZUMAB
     Indication: Asthma
     Dosage: 100 MG, Q4W
     Route: 058
  6. MEPOLIZUMAB [Suspect]
     Active Substance: MEPOLIZUMAB
     Indication: Asthma
     Dosage: 100 MG, Q4W
     Route: 058
  7. MEPOLIZUMAB [Suspect]
     Active Substance: MEPOLIZUMAB
     Indication: Asthma
     Dosage: 100 MG, Q4W
     Route: 058
  8. MEPOLIZUMAB [Suspect]
     Active Substance: MEPOLIZUMAB
     Indication: Asthma
     Dosage: 100 MG, Q4W
     Route: 058
  9. MEPOLIZUMAB [Suspect]
     Active Substance: MEPOLIZUMAB
     Indication: Asthma
     Dosage: 100 MG, Q4W
     Route: 058
  10. COVID-19 VACCINE NOS [Suspect]
     Active Substance: COVID-19 VACCINE
     Indication: Product used for unknown indication
  11. AMOXICILLIN\CLAVULANIC ACID [Concomitant]
     Active Substance: AMOXICILLIN\CLAVULANIC ACID
     Indication: Product used for unknown indication
     Dosage: UNK UNK, BID, 875MG-125MG
  12. PNEUMOVAX 23 [Concomitant]
     Active Substance: PNEUMOCOCCAL VACCINE, POLYVALENT 23
     Indication: Product used for unknown indication
  13. INFLUENZA VIRUS VACCINE [Concomitant]
     Active Substance: INFLUENZA VIRUS VACCINE
     Indication: Product used for unknown indication
  14. LOPERAMIDE [Concomitant]
     Active Substance: LOPERAMIDE
     Indication: Product used for unknown indication
  15. ACETAMINOPHEN [Concomitant]
     Active Substance: ACETAMINOPHEN
     Indication: Product used for unknown indication
  16. CELECOXIB [Concomitant]
     Active Substance: CELECOXIB
     Indication: Product used for unknown indication

REACTIONS (43)
  - Urinary tract infection [Unknown]
  - Abdominal operation [Not Recovered/Not Resolved]
  - Hospitalisation [Unknown]
  - Muscular weakness [Unknown]
  - Pneumonia [Recovered/Resolved]
  - Surgery [Unknown]
  - Tooth extraction [Unknown]
  - Pulmonary oedema [Unknown]
  - Asthmatic crisis [Unknown]
  - Epilepsy [Unknown]
  - Colostomy [Recovering/Resolving]
  - Progressive multiple sclerosis [Unknown]
  - Somnolence [Unknown]
  - Dermatitis allergic [Unknown]
  - Rash macular [Unknown]
  - Anaemia [Unknown]
  - Pain in extremity [Unknown]
  - Myalgia [Unknown]
  - Fall [Unknown]
  - Balance disorder [Recovering/Resolving]
  - Infection [Recovering/Resolving]
  - Haemorrhage [Recovering/Resolving]
  - Mass [Not Recovered/Not Resolved]
  - Bladder pain [Unknown]
  - Blood iron decreased [Unknown]
  - Back pain [Unknown]
  - Bone cyst [Not Recovered/Not Resolved]
  - Discomfort [Unknown]
  - Asthma [Unknown]
  - Loss of personal independence in daily activities [Unknown]
  - Sleep disorder due to a general medical condition [Unknown]
  - Ear infection [Unknown]
  - Ear swelling [Recovering/Resolving]
  - External ear pain [Recovering/Resolving]
  - Erythema [Recovering/Resolving]
  - Otitis externa [Recovering/Resolving]
  - Tremor [Recovering/Resolving]
  - Migraine [Unknown]
  - Rhinovirus infection [Unknown]
  - Urostomy [Unknown]
  - Administration site infection [Unknown]
  - Inappropriate schedule of product administration [Unknown]
  - Therapeutic response shortened [Unknown]

NARRATIVE: CASE EVENT DATE: 20230801
